FAERS Safety Report 15320535 (Version 1)
Quarter: 2018Q3

REPORT INFORMATION
  Report Type: Spontaneous
  Country: US (occurrence: US)
  Receive Date: 20180821
  Receipt Date: 20180821
  Transmission Date: 20181010
  Serious: No
  Sender: FDA-Public Use
  Company Number: None

PATIENT
  Age: 58 Year
  Sex: Male
  Weight: 117 kg

DRUGS (1)
  1. COLLOIDAL SILVER 30 PARTS PER MILLION ARGENTUM METAOLICUM HOMEOPATIC [Suspect]
     Active Substance: HOMEOPATHICS
     Indication: HOMEOPATHY
     Dosage: ?          QUANTITY:1 MOUTH FULL;OTHER ROUTE:THIS PRODUCT WAS NOT USED?

REACTIONS (5)
  - Product packaging quantity issue [None]
  - Product container seal issue [None]
  - Product outer packaging issue [None]
  - Suspected product contamination [None]
  - Suspected product tampering [None]

NARRATIVE: CASE EVENT DATE: 20180818
